FAERS Safety Report 6431813-2 (Version None)
Quarter: 2009Q4

REPORT INFORMATION
  Report Type: 
  Country: None (occurrence: None)
  Receive Date: 20091104
  Receipt Date: 20091022
  Transmission Date: 20100525
  Serious: Yes (Hospitalization, Other)
  Sender: FDA-Public Use
  Company Number: 1-20392190

PATIENT
  Sex: Female

DRUGS (3)
  1. METHIMAZOLE [Suspect]
     Indication: BASEDOW'S DISEASE
     Dosage: 15 MG PER DAY
  2. PROPRANOLOL [Concomitant]
  3. PREDNISONE [Concomitant]

REACTIONS (17)
  - AGRANULOCYTOSIS [None]
  - DYSPHAGIA [None]
  - DYSPNOEA [None]
  - HYPERREFLEXIA [None]
  - HYPERTHERMIA [None]
  - HYPERTHYROIDISM [None]
  - HYPOTENSION [None]
  - HYPOTHYROIDISM [None]
  - MICROCYTIC ANAEMIA [None]
  - MOUTH ULCERATION [None]
  - MUCORMYCOSIS [None]
  - NASAL ULCER [None]
  - ODYNOPHAGIA [None]
  - REFUSAL OF TREATMENT BY PATIENT [None]
  - STOMATITIS NECROTISING [None]
  - TACHYCARDIA [None]
  - TREMOR [None]
